FAERS Safety Report 7315438-2 (Version None)
Quarter: 2011Q1

REPORT INFORMATION
  Report Type: 
  Country: None (occurrence: None)
  Receive Date: 20110225
  Receipt Date: 20110218
  Transmission Date: 20110831
  Serious: Yes (Other)
  Sender: FDA-Public Use
  Company Number: B0702001A

PATIENT
  Sex: Female

DRUGS (3)
  1. IMODIUM [Concomitant]
     Route: 065
  2. XELODA [Concomitant]
     Route: 065
  3. LAPATINIB [Suspect]
     Indication: BREAST CANCER
     Dosage: 1250MG PER DAY
     Route: 065
     Dates: start: 20090811, end: 20101026

REACTIONS (3)
  - CONTUSION [None]
  - MUCOSAL HAEMORRHAGE [None]
  - DIARRHOEA [None]
